FAERS Safety Report 10167806 (Version 1)
Quarter: 2014Q2

REPORT INFORMATION
  Report Type: Spontaneous
  Country: GB (occurrence: GB)
  Receive Date: 20140512
  Receipt Date: 20140512
  Transmission Date: 20141212
  Serious: Yes (Disabling)
  Sender: FDA-Public Use
  Company Number: GB-ASTRAZENECA-2014SE30147

PATIENT
  Age: 71 Year
  Sex: Female
  Weight: 76 kg

DRUGS (2)
  1. ROSUVASTATIN [Suspect]
     Route: 048
  2. AMLODIPINE [Concomitant]
     Dates: start: 20140108, end: 20140205

REACTIONS (2)
  - Lethargy [Recovered/Resolved]
  - Myalgia [Recovered/Resolved]
